FAERS Safety Report 4766084-6 (Version None)
Quarter: 2005Q3

REPORT INFORMATION
  Report Type: 
  Country: None (occurrence: None)
  Receive Date: 20050906
  Receipt Date: 20050818
  Transmission Date: 20060218
  Serious: Yes (Death, Life-Threatening, Hospitalization, Disabling, Other)
  Sender: FDA-Public Use
  Company Number: A-US2005-09708

PATIENT
  Age: 75 Year
  Sex: Female
  Weight: 54.4 kg

DRUGS (14)
  1. TRACLEER [Suspect]
     Indication: PULMONARY HYPERTENSION
     Dosage: 62.5 MG, BID, ORAL
     Route: 048
     Dates: start: 20050422, end: 20050505
  2. LASIX [Concomitant]
  3. ZYRTEC [Concomitant]
  4. LANOXIN [Concomitant]
  5. COUMADIN [Concomitant]
  6. LEVOTHROID [Concomitant]
  7. TOPROL-XL [Concomitant]
  8. BENICAR (OLEMSARTAN) [Concomitant]
  9. NEXIUM [Concomitant]
  10. MIRAPEX ^BOEHRINGER INGELHEIM^ (PRAMIPEXOLE DIHYDROCHLORIDE) [Concomitant]
  11. CLONAZEPAM [Concomitant]
  12. OXYSTEROL PATCH [Concomitant]
  13. MIRALAX (OXAZEPAM) [Concomitant]
  14. STOOL SOFTENER (DOCUSATE SODIUM) [Concomitant]

REACTIONS (12)
  - ADRENAL INSUFFICIENCY [None]
  - BLOOD GLUCOSE INCREASED [None]
  - CARDIAC FAILURE CONGESTIVE [None]
  - COR PULMONALE [None]
  - HAEMATOCRIT DECREASED [None]
  - HAEMOGLOBIN DECREASED [None]
  - HEPATIC FAILURE [None]
  - HYPOTENSION [None]
  - PLATELET COUNT DECREASED [None]
  - PULMONARY HYPERTENSION [None]
  - RENAL FAILURE ACUTE [None]
  - RIGHT VENTRICULAR FAILURE [None]
